FAERS Safety Report 18171407 (Version 1)
Quarter: 2020Q3

REPORT INFORMATION
  Report Type: Spontaneous
  Country: US (occurrence: US)
  Receive Date: 20200819
  Receipt Date: 20200819
  Transmission Date: 20201103
  Serious: No
  Sender: FDA-Public Use
  Company Number: US-TEVA-2020-US-1815347

PATIENT
  Age: 76 Year
  Sex: Female

DRUGS (1)
  1. CARBIDOPA AND LEVODOPA [Suspect]
     Active Substance: CARBIDOPA\LEVODOPA
     Dosage: CARBIDOPA/LEVODOPA: 25 MG AND 100 MG TABLETS RESPECTIVELY
     Route: 065

REACTIONS (7)
  - Dry throat [Unknown]
  - Wrong technique in product usage process [Unknown]
  - Drug ineffective [Unknown]
  - Aptyalism [Unknown]
  - Tongue dry [Unknown]
  - Choking sensation [Unknown]
  - Malaise [Unknown]
